FAERS Safety Report 7627014-2 (Version None)
Quarter: 2011Q3

REPORT INFORMATION
  Report Type: 
  Country: None (occurrence: None)
  Receive Date: 20110721
  Receipt Date: 20110713
  Transmission Date: 20111222
  Serious: Yes (Other)
  Sender: FDA-Public Use
  Company Number: PHHY2011GB35207

PATIENT
  Age: 72 Year
  Sex: Female

DRUGS (1)
  1. MIRTAZAPINE [Suspect]
     Indication: DEPRESSED MOOD
     Dosage: 45 MG, UNK
     Route: 048
     Dates: start: 20100906, end: 20101007

REACTIONS (1)
  - COMPULSIVE SEXUAL BEHAVIOUR [None]
